FAERS Safety Report 14486474 (Version 1)
Quarter: 2018Q1

REPORT INFORMATION
  Report Type: Spontaneous
  Country: CN (occurrence: CN)
  Receive Date: 20180205
  Receipt Date: 20180205
  Transmission Date: 20180509
  Serious: Yes (Hospitalization, Other)
  Sender: FDA-Public Use
  Company Number: CN-PFIZER INC-2018045787

PATIENT
  Age: 58 Year
  Sex: Male
  Weight: 72 kg

DRUGS (2)
  1. NORVASC [Suspect]
     Active Substance: AMLODIPINE BESYLATE
     Indication: ESSENTIAL HYPERTENSION
     Dosage: 5 MG, 1X/DAY
     Route: 048
     Dates: start: 20171101
  2. IRBESARTAN. [Suspect]
     Active Substance: IRBESARTAN
     Indication: ESSENTIAL HYPERTENSION
     Dosage: 150 MG, 1X/DAY
     Route: 048
     Dates: start: 20171101

REACTIONS (3)
  - Mental disorder [Unknown]
  - Upper gastrointestinal haemorrhage [Recovering/Resolving]
  - Decreased appetite [Unknown]

NARRATIVE: CASE EVENT DATE: 20171119
